FAERS Safety Report 12750266 (Version 1)
Quarter: 2016Q3

REPORT INFORMATION
  Report Type: Spontaneous
  Country: UA (occurrence: UA)
  Receive Date: 20160916
  Receipt Date: 20160916
  Transmission Date: 20161109
  Serious: Yes (Hospitalization)
  Sender: FDA-Public Use
  Company Number: UA-DRREDDYS-GPV/UKR/16/0083062

PATIENT
  Age: 24 Year
  Sex: Male

DRUGS (1)
  1. CIPROLET 500MG FILM COATED TABLETS [Suspect]
     Active Substance: CIPROFLOXACIN
     Indication: TOOTH EXTRACTION
     Route: 048
     Dates: start: 20130915

REACTIONS (4)
  - Eyelid oedema [Recovered/Resolved]
  - Face oedema [Recovered/Resolved]
  - Pruritus [Recovered/Resolved]
  - Lip oedema [Recovered/Resolved]

NARRATIVE: CASE EVENT DATE: 20130915
